FAERS Safety Report 12501608 (Version 1)
Quarter: 2016Q2

REPORT INFORMATION
  Report Type: Spontaneous
  Country: US (occurrence: US)
  Receive Date: 20160627
  Receipt Date: 20160627
  Transmission Date: 20160815
  Serious: Yes (Other)
  Sender: FDA-Public Use
  Company Number: US-BAYER-2016-118725

PATIENT
  Age: 34 Year
  Sex: Female

DRUGS (1)
  1. BETASERON [Suspect]
     Active Substance: INTERFERON BETA-1B
     Indication: MULTIPLE SCLEROSIS
     Dosage: 0.3 MG, QOD
     Route: 058
     Dates: start: 201603

REACTIONS (5)
  - Multiple sclerosis relapse [None]
  - Injection site reaction [None]
  - Influenza like illness [None]
  - Fatigue [None]
  - Pain [None]

NARRATIVE: CASE EVENT DATE: 2016
